FAERS Safety Report 5599363-3 (Version None)
Quarter: 2008Q1

REPORT INFORMATION
  Report Type: 
  Country: None (occurrence: None)
  Receive Date: 20080122
  Receipt Date: 20080110
  Transmission Date: 20080703
  Serious: Yes (Other)
  Sender: FDA-Public Use
  Company Number: US-PFIZER INC-2008004125

PATIENT

DRUGS (2)
  1. DILANTIN [Suspect]
     Indication: CONVULSION
  2. LYRICA [Suspect]
     Indication: CONVULSION

REACTIONS (2)
  - ANTICONVULSANT DRUG LEVEL DECREASED [None]
  - CONVULSION [None]
